FAERS Safety Report 24883225 (Version 4)
Quarter: 2025Q2

REPORT INFORMATION
  Report Type: Report from Study
  Country: US (occurrence: US)
  Receive Date: 20250124
  Receipt Date: 20250515
  Transmission Date: 20250717
  Serious: Yes (Other)
  Sender: GILEAD
  Company Number: US-GILEAD-2025-0700108

PATIENT
  Age: 43 Year
  Sex: Female

DRUGS (5)
  1. AMBRISENTAN [Suspect]
     Active Substance: AMBRISENTAN
     Indication: Pulmonary arterial hypertension
     Dosage: 10 MG, QD
     Route: 065
     Dates: start: 202411
  2. AMBRISENTAN [Suspect]
     Active Substance: AMBRISENTAN
     Dosage: 10 MG, QD
     Route: 048
     Dates: start: 202411
  3. REMODULIN [Suspect]
     Active Substance: TREPROSTINIL
     Indication: Pulmonary arterial hypertension
     Dosage: 116.4 ML, QD
     Route: 058
     Dates: start: 202105
  4. WINREVAIR [Suspect]
     Active Substance: SOTATERCEPT-CSRK
     Indication: Product used for unknown indication
     Route: 065
  5. ADEMPAS [Concomitant]
     Active Substance: RIOCIGUAT
     Indication: Pulmonary arterial hypertension
     Dosage: 2.5MG BY MOUTH 3 TIMES DAILY
     Route: 048
     Dates: start: 202307

REACTIONS (10)
  - Bendopnoea [Unknown]
  - Infusion site pain [Not Recovered/Not Resolved]
  - Dyspnoea exertional [Unknown]
  - Platelet count decreased [Unknown]
  - Pain in jaw [Not Recovered/Not Resolved]
  - Pain in extremity [Recovering/Resolving]
  - Nausea [Not Recovered/Not Resolved]
  - Diarrhoea [Recovering/Resolving]
  - Constipation [Unknown]
  - Injection site pruritus [Recovering/Resolving]
